FAERS Safety Report 6856526-4 (Version None)
Quarter: 2010Q3

REPORT INFORMATION
  Report Type: 
  Country: None (occurrence: None)
  Receive Date: 20100719
  Receipt Date: 20100707
  Transmission Date: 20110219
  Serious: Yes (Other)
  Sender: FDA-Public Use
  Company Number: CO-ROCHE-713678

PATIENT
  Sex: Female

DRUGS (4)
  1. AVASTIN [Suspect]
     Indication: COLORECTAL CANCER
     Dosage: FREQUENCY: EVERY 14 DAYS
     Route: 042
     Dates: start: 20090831, end: 20100401
  2. XELODA [Suspect]
     Indication: COLORECTAL CANCER
     Dosage: FREQUENCY: QD
     Route: 048
     Dates: start: 20090831, end: 20100401
  3. OMEPRAZOLE [Concomitant]
     Dosage: FREQUENCY: QD
     Route: 048
  4. LOPERAMIDE [Concomitant]
     Dosage: FREQUENCY: QD
     Route: 048

REACTIONS (1)
  - PULMONARY TUBERCULOSIS [None]
